FAERS Safety Report 22962719 (Version 3)
Quarter: 2023Q4

REPORT INFORMATION
  Report Type: Spontaneous
  Country: US (occurrence: US)
  Receive Date: 20230920
  Receipt Date: 20231012
  Transmission Date: 20240109
  Serious: No
  Sender: FDA-Public Use
  Company Number: US-BRISTOL-MYERS SQUIBB COMPANY-2023-133625

PATIENT
  Age: 59 Year
  Sex: Female

DRUGS (1)
  1. REVLIMID [Suspect]
     Active Substance: LENALIDOMIDE
     Indication: Plasma cell myeloma
     Route: 048
     Dates: start: 202309

REACTIONS (7)
  - Diarrhoea [Unknown]
  - Rash [Recovered/Resolved]
  - Swelling [Recovered/Resolved]
  - Hot flush [Unknown]
  - Nasopharyngitis [Unknown]
  - Feeling abnormal [Unknown]
  - Bronchitis [Unknown]

NARRATIVE: CASE EVENT DATE: 20230926
